FAERS Safety Report 12530074 (Version 1)
Quarter: 2016Q3

REPORT INFORMATION
  Report Type: Spontaneous
  Country: US (occurrence: None)
  Receive Date: 20160705
  Receipt Date: 20160705
  Transmission Date: 20161109
  Serious: Yes (Life-Threatening)
  Sender: FDA-Public Use
  Company Number: None

PATIENT
  Age: 67 Year
  Sex: Female
  Weight: 56.8 kg

DRUGS (18)
  1. ACETAMINOPHEN. [Concomitant]
     Active Substance: ACETAMINOPHEN
  2. RIVAROXABAN, 20 MG [Suspect]
     Active Substance: RIVAROXABAN
     Indication: ATRIAL FIBRILLATION
     Dosage: 20 MG DAILY G TUBE
     Dates: start: 20160624, end: 20160630
  3. ATORVASTATIN [Concomitant]
     Active Substance: ATORVASTATIN
  4. SILDENAFIL. [Concomitant]
     Active Substance: SILDENAFIL
  5. CLONAZEPAM. [Concomitant]
     Active Substance: CLONAZEPAM
  6. AMIODARONE [Concomitant]
     Active Substance: AMIODARONE
  7. ZONISAMIDE. [Concomitant]
     Active Substance: ZONISAMIDE
  8. ZOLPIDEM [Concomitant]
     Active Substance: ZOLPIDEM\ZOLPIDEM TARTRATE
  9. ASPIRIN. [Concomitant]
     Active Substance: ASPIRIN
  10. LANSOPRAZOLE. [Concomitant]
     Active Substance: LANSOPRAZOLE
  11. ALPRAZOLAM. [Concomitant]
     Active Substance: ALPRAZOLAM
  12. LEVETIRACETAM. [Concomitant]
     Active Substance: LEVETIRACETAM
  13. SPIRONOLACTONE. [Concomitant]
     Active Substance: SPIRONOLACTONE
  14. PREDNISONE. [Concomitant]
     Active Substance: PREDNISONE
  15. SERTRALINE [Concomitant]
     Active Substance: SERTRALINE HYDROCHLORIDE
  16. ACETAMINOPHEN-HYDROCODONE [Concomitant]
  17. DUONEB [Concomitant]
     Active Substance: ALBUTEROL SULFATE\IPRATROPIUM BROMIDE
  18. TRAMADOL. [Concomitant]
     Active Substance: TRAMADOL

REACTIONS (3)
  - Haemoglobin decreased [None]
  - Blood pressure decreased [None]
  - Unresponsive to stimuli [None]

NARRATIVE: CASE EVENT DATE: 20160630
